FAERS Safety Report 17679062 (Version 1)
Quarter: 2020Q2

REPORT INFORMATION
  Report Type: Spontaneous
  Country: US (occurrence: US)
  Receive Date: 20200417
  Receipt Date: 20200417
  Transmission Date: 20200714
  Serious: No
  Sender: FDA-Public Use
  Company Number: US-GLAXOSMITHKLINE-US2020064811

PATIENT

DRUGS (1)
  1. ALLI [Suspect]
     Active Substance: ORLISTAT
     Indication: PRODUCT USED FOR UNKNOWN INDICATION
     Dosage: UNK

REACTIONS (7)
  - Faeces discoloured [Unknown]
  - Drug ineffective [Unknown]
  - Product complaint [Unknown]
  - Wrong technique in product usage process [Unknown]
  - Steatorrhoea [Unknown]
  - Suspected counterfeit product [Unknown]
  - Treatment noncompliance [Unknown]
